FAERS Safety Report 9263067 (Version 2)
Quarter: 2013Q2

REPORT INFORMATION
  Report Type: Spontaneous
  Country: JP (occurrence: JP)
  Receive Date: 20130430
  Receipt Date: 20130530
  Transmission Date: 20140414
  Serious: Yes (Other)
  Sender: FDA-Public Use
  Company Number: JP-ELI_LILLY_AND_COMPANY-JP201304005528

PATIENT
  Age: 75 Year
  Sex: Female

DRUGS (2)
  1. FORTEO [Suspect]
     Dosage: UNK UNK, EACH EVENING
     Route: 058
  2. FORTEO [Suspect]
     Dosage: UNK, EACH EVENING
     Route: 058

REACTIONS (3)
  - Blindness transient [Recovered/Resolved]
  - Dizziness [Recovered/Resolved]
  - Incorrect storage of drug [Unknown]
